FAERS Safety Report 6630807-1 (Version None)
Quarter: 2010Q1

REPORT INFORMATION
  Report Type: 
  Country: None (occurrence: None)
  Receive Date: 20100310
  Receipt Date: 20100310
  Transmission Date: 20100710
  Serious: Yes (Hospitalization)
  Sender: FDA-Public Use
  Company Number: None

PATIENT
  Sex: Female
  Weight: 96.9 kg

DRUGS (1)
  1. OMNIPAQUE 300 [Suspect]
     Indication: SCAN WITH CONTRAST
     Dosage: 150ML OF 300MGI/ML  ONE-TIME IV
     Route: 042
     Dates: start: 20100203

REACTIONS (4)
  - ABDOMINAL PAIN LOWER [None]
  - MENINGITIS ASEPTIC [None]
  - NAUSEA [None]
  - VOMITING [None]
